FAERS Safety Report 9357386 (Version 1)
Quarter: 2013Q2

REPORT INFORMATION
  Report Type: Spontaneous
  Country: US (occurrence: None)
  Receive Date: 20130617
  Receipt Date: 20130617
  Transmission Date: 20140414
  Serious: Yes (Other)
  Sender: FDA-Public Use
  Company Number: ACO_36702_2013

PATIENT
  Sex: Female

DRUGS (26)
  1. AMPYRA [Suspect]
     Indication: PRODUCT USED FOR UNKNOWN INDICATION
     Route: 048
  2. ZANAFLEX (TIZANIDINE HYDROCHLORIDE) TABLET [Concomitant]
  3. PRENATAL (FOLIC ACID, IRON) CAPSULE [Concomitant]
  4. IRON (FERROUS SULFATE) TABLET [Concomitant]
  5. GILENYA (FINGOLIMOD HYDROCHLORIDE) CAPSULE [Concomitant]
  6. VITAMIN E (TOCOPHERYL ACID SUCCINATE) CAPSULE [Concomitant]
  7. PROBIOTICS CAPSULE [Concomitant]
  8. GINKGO BILOBA (GINKGO BILOBA) TABLET [Concomitant]
  9. ALL OTHER THERAPEUTIC PRODUCTS CAPSULE [Concomitant]
  10. CALCIUM (CALCIUM) TABLET [Concomitant]
  11. MAGNESIUM (MAGNESIUM) [Concomitant]
  12. VITAMIN B COMPLEX (CALCIUM PANTOTHENATE, NICOTINAMIDE, PYRIDOXINE HYDROCHLORIDE, RIBOFLAVIN, THIAMINE HYDROCHLORIDE) TABLET [Concomitant]
  13. DIAZEPAM (DIAZEPAM) TABLET [Concomitant]
  14. MAXZIDE (HYDROCHLOROTHIAZIDE, TRIAMTERENE) TABLET [Concomitant]
  15. MORPHINE SULFATE (MORPHINE SULFATE) TABLET [Concomitant]
  16. CYMBALTA (DULOXETINE HYDROCHLORIDE) CAPSULE [Concomitant]
  17. TOPAMAX (TOPIRAMATE) TABLET [Concomitant]
  18. NEXIUM (ESOMEPRAZOLE MAGNESIUM) CAPSULE [Concomitant]
  19. ZYRTEC (CETIRIZINE HYDROCHLORIDE) CAPSULE [Concomitant]
  20. SINGULAIR [Concomitant]
  21. VITAMIN C (ASCORBIC ACID) TABLET [Concomitant]
  22. VITAMIN D (ERGOCALCIFEROL) TABLET [Concomitant]
  23. NIACIN (NICOTINIC ACID) TABLET [Concomitant]
  24. KLOR-CON M15 (POTASSIUM CHLORIDE) TABLET [Concomitant]
  25. CO Q-10 (UBIDECARENONE) CAPSULE [Concomitant]
  26. SENOKOT (SENNA ALEXANDRINA) TABLET [Concomitant]

REACTIONS (3)
  - Depression [None]
  - Pain [None]
  - Adverse drug reaction [None]
